FAERS Safety Report 4362087-4 (Version None)
Quarter: 2004Q2

REPORT INFORMATION
  Report Type: 
  Country: None (occurrence: None)
  Receive Date: 20040521
  Receipt Date: 20040224
  Transmission Date: 20050107
  Serious: No
  Sender: FDA-Public Use
  Company Number: US-GLAXOSMITHKLINE-A0500737A

PATIENT
  Age: 31 Year
  Sex: Female
  Weight: 50.9 kg

DRUGS (2)
  1. WELLBUTRIN XL [Suspect]
     Indication: DRUG USE FOR UNKNOWN INDICATION
     Dosage: 300MG PER DAY
     Route: 048
  2. LEXAPRO [Concomitant]
     Dosage: 10MG UNKNOWN
     Route: 065

REACTIONS (1)
  - WEIGHT INCREASED [None]
